FAERS Safety Report 4816966-1 (Version None)
Quarter: 2005Q3

REPORT INFORMATION
  Report Type: 
  Country: None (occurrence: None)
  Receive Date: 20050929
  Receipt Date: 20050615
  Transmission Date: 20060218
  Serious: No
  Sender: FDA-Public Use
  Company Number: 05P-163-0303349-00

PATIENT
  Age: 62 Year
  Sex: Female
  Weight: 68.0396 kg

DRUGS (3)
  1. HUMIRA [Suspect]
     Indication: RHEUMATOID ARTHRITIS
     Dosage: 40 MG, 1 IN 2 WK SUBCUTANEOUS
     Route: 058
     Dates: start: 20050520
  2. ESTROGEN PATCH [Concomitant]
  3. BUTALBITAL W/ ASPIRIN + CAFFEINE [Concomitant]

REACTIONS (3)
  - CONTUSION [None]
  - COUGH [None]
  - INCREASED UPPER AIRWAY SECRETION [None]
